FAERS Safety Report 7611418-8 (Version None)
Quarter: 2011Q3

REPORT INFORMATION
  Report Type: 
  Country: None (occurrence: None)
  Receive Date: 20110715
  Receipt Date: 20110705
  Transmission Date: 20111222
  Serious: Yes (Death, Hospitalization, Other)
  Sender: FDA-Public Use
  Company Number: NL-US-EMD SERONO, INC.-7069336

PATIENT
  Sex: Female

DRUGS (6)
  1. AMITRIPTYLINE HCL [Concomitant]
     Dates: end: 20110612
  2. IBUPROFEN [Concomitant]
     Dates: end: 20110612
  3. EUTHYROX [Concomitant]
     Dates: end: 20110612
  4. REBIF [Suspect]
     Indication: MULTIPLE SCLEROSIS
     Route: 058
     Dates: start: 19981101, end: 20110612
  5. ALENDRONIN ACID [Concomitant]
     Dates: end: 20110612
  6. METAMUCIL-2 [Concomitant]
     Dates: end: 20110612

REACTIONS (6)
  - CARDIAC ARREST [None]
  - CIRCULATORY COLLAPSE [None]
  - ARRHYTHMIA [None]
  - VENTRICULAR TACHYCARDIA [None]
  - HYSTERECTOMY [None]
  - HYPOTHYROIDISM [None]
